FAERS Safety Report 15666357 (Version 2)
Quarter: 2019Q1

REPORT INFORMATION
  Report Type: Spontaneous
  Country: JP (occurrence: JP)
  Receive Date: 20181128
  Receipt Date: 20190103
  Transmission Date: 20190417
  Serious: Yes (Death, Hospitalization, Other)
  Sender: FDA-Public Use
  Company Number: JP-BAYER-2018-218294

PATIENT
  Age: 85 Year
  Sex: Male

DRUGS (12)
  1. BAYASPIRIN 100 MG [Concomitant]
     Active Substance: ASPIRIN
     Dosage: 100 MG, QD
     Route: 048
  2. STIVARGA [Suspect]
     Active Substance: REGORAFENIB
     Indication: HEPATOCELLULAR CARCINOMA
     Dosage: 160 MG, QD
     Route: 048
     Dates: start: 20170808, end: 20180127
  3. SALOBEL [Concomitant]
     Active Substance: ALLOPURINOL
     Dosage: 100 MG, QD
  4. NEXAVAR [Suspect]
     Active Substance: SORAFENIB
     Indication: HEPATOCELLULAR CARCINOMA
     Dosage: UNK
     Route: 048
     Dates: start: 20170327, end: 20170427
  5. CARVEDILOL. [Concomitant]
     Active Substance: CARVEDILOL
     Indication: HYPERTENSION
     Dosage: 2.5 MG, BID
     Route: 048
  6. DAIKENCHUTO [Concomitant]
     Active Substance: HERBALS
     Dosage: 2.5 G, TID
     Route: 048
  7. URSODEOXYCHOLIC ACID [Concomitant]
     Active Substance: URSODIOL
     Dosage: 200 MG, TID
     Route: 048
  8. MIYA-BM [Concomitant]
     Active Substance: CLOSTRIDIUM BUTYRICUM SPORES STRAIN M-55
     Dosage: 1 DF, TID
     Route: 048
  9. PIARLE [Concomitant]
     Dosage: 30 ML, BID
  10. NEXIUM 1-2-3 [Concomitant]
     Active Substance: AMOXICILLIN\CLARITHROMYCIN\ESOMEPRAZOLE
     Dosage: 1 DF, QD
     Route: 048
  11. NICORANDIL [Concomitant]
     Active Substance: NICORANDIL
     Dosage: 5 MG, TID
     Route: 048
  12. UREA. [Concomitant]
     Active Substance: UREA
     Dosage: UNK UNK, QD

REACTIONS (9)
  - Palmar erythema [None]
  - Atrial fibrillation [None]
  - Palmar-plantar erythrodysaesthesia syndrome [None]
  - Cardiac failure [Fatal]
  - Myocardial ischaemia [None]
  - Dyspnoea [Fatal]
  - Skin exfoliation [None]
  - Hepatocellular carcinoma [None]
  - Skin hypertrophy [None]

NARRATIVE: CASE EVENT DATE: 20180127
